FAERS Safety Report 5352445-3 (Version None)
Quarter: 2007Q2

REPORT INFORMATION
  Report Type: 
  Country: None (occurrence: None)
  Receive Date: 20070611
  Receipt Date: 20070606
  Transmission Date: 20071010
  Serious: Yes (Other)
  Sender: FDA-Public Use
  Company Number: A0654431A

PATIENT
  Age: 81 Year
  Sex: Female

DRUGS (6)
  1. TYKERB [Suspect]
     Indication: BREAST CANCER
     Dosage: 5TAB AT NIGHT
     Route: 048
     Dates: start: 20060514, end: 20060521
  2. HERCEPTIN [Concomitant]
  3. SPIRONOLACTONE [Concomitant]
  4. PLAVIX [Concomitant]
  5. LOMOTIL [Concomitant]
  6. REGLAN [Concomitant]

REACTIONS (5)
  - DEAFNESS [None]
  - DIARRHOEA [None]
  - FATIGUE [None]
  - NAUSEA [None]
  - WEIGHT DECREASED [None]
